FAERS Safety Report 9553045 (Version 1)
Quarter: 2013Q3

REPORT INFORMATION
  Report Type: Report from Study
  Country: KR (occurrence: KR)
  Receive Date: 20130925
  Receipt Date: 20130925
  Transmission Date: 20140515
  Serious: No
  Sender: FDA-Public Use
  Company Number: PHHY2013KR102772

PATIENT
  Age: 29 Year
  Sex: Male

DRUGS (4)
  1. AMN107 [Suspect]
     Indication: CHRONIC MYELOID LEUKAEMIA
     Dosage: 800 MG, QD
     Route: 048
     Dates: start: 20120814
  2. EPINASTINE HYDROCHLORIDE [Concomitant]
     Indication: RASH
     Dosage: 10 MG, UNK
     Route: 048
     Dates: start: 20120626
  3. SODIUM HYALURONATE [Concomitant]
     Indication: DRY EYE
     Dosage: UNK
     Route: 047
     Dates: start: 20120816
  4. EMEDASTINE DIFUMARATE [Concomitant]
     Indication: RASH
     Dosage: 2 MG, UNK
     Route: 048
     Dates: start: 20120626

REACTIONS (1)
  - Blepharitis [Recovered/Resolved]
